FAERS Safety Report 23178419 (Version 2)
Quarter: 2023Q4

REPORT INFORMATION
  Report Type: Report from Study
  Country: US (occurrence: US)
  Receive Date: 20231113
  Receipt Date: 20231211
  Transmission Date: 20240110
  Serious: Yes (Life-Threatening, Other)
  Sender: FDA-Public Use
  Company Number: US-ALXN-A202306082AA

PATIENT
  Sex: Male

DRUGS (1)
  1. STRENSIQ [Suspect]
     Active Substance: ASFOTASE ALFA
     Indication: Hypophosphatasia
     Dosage: UNK
     Route: 065
     Dates: start: 2018

REACTIONS (18)
  - Coronary artery occlusion [Unknown]
  - Gallbladder injury [Unknown]
  - Myocardial infarction [Unknown]
  - Gastric haemorrhage [Unknown]
  - Seasonal allergy [Not Recovered/Not Resolved]
  - Feeling hot [Unknown]
  - Heat stroke [Unknown]
  - Insomnia [Unknown]
  - Hernia [Unknown]
  - Bone fragmentation [Unknown]
  - Procedural pain [Unknown]
  - Depression [Unknown]
  - Weight decreased [Unknown]
  - Peripheral swelling [Unknown]
  - Finger deformity [Unknown]
  - Arthralgia [Not Recovered/Not Resolved]
  - Sneezing [Unknown]
  - Rhinorrhoea [Unknown]

NARRATIVE: CASE EVENT DATE: 20180101
